FAERS Safety Report 24841130 (Version 3)
Quarter: 2025Q2

REPORT INFORMATION
  Report Type: Spontaneous
  Country: US (occurrence: US)
  Receive Date: 20250114
  Receipt Date: 20250625
  Transmission Date: 20250716
  Serious: Yes (Other)
  Sender: APELLIS PHARMACEUTICALS
  Company Number: US-APELLIS-2025-APL-0000077

PATIENT

DRUGS (4)
  1. SYFOVRE [Suspect]
     Active Substance: PEGCETACOPLAN
     Indication: Product used for unknown indication
  2. Atropair [Concomitant]
     Indication: Product used for unknown indication
  3. PREDNISONE [Concomitant]
     Active Substance: PREDNISONE
     Indication: Product used for unknown indication
  4. BRIMONIDINE TARTRATE\TIMOLOL MALEATE [Concomitant]
     Active Substance: BRIMONIDINE TARTRATE\TIMOLOL MALEATE
     Indication: Product used for unknown indication

REACTIONS (4)
  - Retinal vasculitis [Unknown]
  - Vitritis [Recovering/Resolving]
  - Vision blurred [Unknown]
  - Visual impairment [Unknown]

NARRATIVE: CASE EVENT DATE: 20241231
